FAERS Safety Report 6217136-5 (Version None)
Quarter: 2009Q2

REPORT INFORMATION
  Report Type: 
  Country: None (occurrence: None)
  Receive Date: 20090606
  Receipt Date: 20090525
  Transmission Date: 20091009
  Serious: Yes (Hospitalization, Other)
  Sender: FDA-Public Use
  Company Number: DE-PFIZER INC-2009217575

PATIENT
  Age: 81 Year

DRUGS (1)
  1. SOMATROPIN [Suspect]
     Indication: HYPOPITUITARISM
     Dosage: 0.2 MG, 1X/DAY
     Route: 058
     Dates: start: 20060509, end: 20090501

REACTIONS (4)
  - ABDOMINAL PAIN [None]
  - FAECALOMA [None]
  - GASTROINTESTINAL CARCINOMA [None]
  - PNEUMONIA [None]
